FAERS Safety Report 18922786 (Version 1)
Quarter: 2021Q1

REPORT INFORMATION
  Report Type: Spontaneous
  Country: US (occurrence: US)
  Receive Date: 20210222
  Receipt Date: 20210222
  Transmission Date: 20210420
  Serious: Yes (Hospitalization)
  Sender: FDA-Public Use
  Company Number: None

PATIENT
  Age: 62 Year
  Sex: Female

DRUGS (11)
  1. METOPROLOL TARTRATE. [Concomitant]
     Active Substance: METOPROLOL TARTRATE
  2. ASPIRIN. [Concomitant]
     Active Substance: ASPIRIN
  3. BUDESONIDE. [Concomitant]
     Active Substance: BUDESONIDE
  4. LISINOPRIL. [Concomitant]
     Active Substance: LISINOPRIL
  5. GABAPENTIN. [Concomitant]
     Active Substance: GABAPENTIN
  6. IPRATROPIUM [Concomitant]
     Active Substance: IPRATROPIUM
  7. LEVETIRACETA [Concomitant]
     Active Substance: LEVETIRACETAM
  8. ZOLPIDEM [Concomitant]
     Active Substance: ZOLPIDEM TARTRATE
  9. PROCRIT [Suspect]
     Active Substance: ERYTHROPOIETIN
     Indication: CHRONIC KIDNEY DISEASE
     Dosage: ?          OTHER FREQUENCY:THREE TIMES A WEEK;?
     Route: 058
     Dates: start: 20181123
  10. FUROSEMIDE. [Concomitant]
     Active Substance: FUROSEMIDE
  11. ATORVASTATIN [Concomitant]
     Active Substance: ATORVASTATIN

REACTIONS (2)
  - Therapy interrupted [None]
  - Hospitalisation [None]

NARRATIVE: CASE EVENT DATE: 20210219
